FAERS Safety Report 6904850-9 (Version None)
Quarter: 2010Q3

REPORT INFORMATION
  Report Type: 
  Country: None (occurrence: None)
  Receive Date: 20100804
  Receipt Date: 20090720
  Transmission Date: 20110219
  Serious: No
  Sender: FDA-Public Use
  Company Number: US-PFIZER INC-2009243885

PATIENT
  Sex: Female

DRUGS (4)
  1. LYRICA [Suspect]
     Indication: PAIN
  2. SOLU-MEDROL [Suspect]
     Route: 042
  3. PREDNISONE [Suspect]
  4. NAPROXEN [Suspect]

REACTIONS (6)
  - BLOOD PRESSURE FLUCTUATION [None]
  - DRUG INEFFECTIVE [None]
  - MUSCULAR WEAKNESS [None]
  - MYALGIA [None]
  - SCLERAL DISCOLOURATION [None]
  - TREMOR [None]
